FAERS Safety Report 6182873-8 (Version None)
Quarter: 2009Q2

REPORT INFORMATION
  Report Type: 
  Country: None (occurrence: None)
  Receive Date: 20090507
  Receipt Date: 20090429
  Transmission Date: 20091009
  Serious: Yes (Other)
  Sender: FDA-Public Use
  Company Number: GB-AVENTIS-200913776GDDC

PATIENT
  Age: 52 Year
  Sex: Female
  Weight: 106 kg

DRUGS (6)
  1. LANTUS [Suspect]
     Route: 058
     Dates: start: 20071105
  2. LANTUS [Suspect]
     Route: 058
     Dates: start: 20071105
  3. EZETIMIBE [Concomitant]
     Route: 048
  4. GLIMEPIRIDE [Concomitant]
     Route: 048
  5. METFORMIN HCL [Concomitant]
     Route: 048
  6. NOVORAPID [Concomitant]

REACTIONS (6)
  - BACK PAIN [None]
  - FEELING COLD [None]
  - FEELING HOT [None]
  - HYPERHIDROSIS [None]
  - MALAISE [None]
  - PANIC ATTACK [None]
